FAERS Safety Report 8767437 (Version 3)
Quarter: 2012Q4

REPORT INFORMATION
  Report Type: 
  Country: JP (occurrence: JP)
  Receive Date: 20120904
  Receipt Date: 20121003
  Transmission Date: 20130627
  Serious: Yes (Other)
  Sender: FDA-Public Use
  Company Number: JP-JNJFOC-20120815020

PATIENT
  Age: 7 None
  Sex: Female

DRUGS (7)
  1. SIMPONI [Suspect]
     Indication: RHEUMATOID ARTHRITIS
     Dosage: 3rd infusion
     Route: 058
     Dates: start: 20120508, end: 20120508
  2. SIMPONI [Suspect]
     Indication: RHEUMATOID ARTHRITIS
     Route: 058
     Dates: start: 20120313
  3. AZULFIDINE-EN [Concomitant]
     Indication: RHEUMATOID ARTHRITIS
     Route: 048
     Dates: start: 200611, end: 20120828
  4. PARIET [Concomitant]
     Indication: PROPHYLAXIS AGAINST GASTROINTESTINAL ULCER
     Route: 048
     Dates: start: 200905
  5. MOBIC [Concomitant]
     Route: 048
  6. CELECOX [Concomitant]
     Indication: RHEUMATOID ARTHRITIS
     Route: 048
     Dates: start: 201204, end: 20120828
  7. FERROMIA [Concomitant]
     Indication: ANAEMIA
     Route: 048
     Dates: start: 201204, end: 20120508

REACTIONS (1)
  - Leukocytoclastic vasculitis [Recovered/Resolved]
